FAERS Safety Report 19982746 (Version 2)
Quarter: 2024Q3

REPORT INFORMATION
  Report Type: Report from Study
  Country: US (occurrence: None)
  Receive Date: 20211021
  Receipt Date: 20240806
  Transmission Date: 20241016
  Serious: Yes (Other)
  Sender: ASTRAZENECA
  Company Number: 2021A774296

PATIENT
  Sex: Female

DRUGS (1)
  1. CALQUENCE [Suspect]
     Active Substance: ACALABRUTINIB
     Route: 048

REACTIONS (4)
  - Sensation of foreign body [Recovering/Resolving]
  - Hypersensitivity [Unknown]
  - Headache [Recovering/Resolving]
  - Pharyngeal swelling [Recovering/Resolving]
